FAERS Safety Report 14641935 (Version 1)
Quarter: 2018Q1

REPORT INFORMATION
  Report Type: Spontaneous
  Country: US (occurrence: US)
  Receive Date: 20180315
  Receipt Date: 20180315
  Transmission Date: 20180509
  Serious: No
  Sender: FDA-Public Use
  Company Number: US-AKRON, INC.-2043843

PATIENT

DRUGS (1)
  1. PAREMYD [Suspect]
     Active Substance: HYDROXYAMPHETAMINE HYDROBROMIDE\TROPICAMIDE
     Indication: DIAGNOSTIC PROCEDURE
     Route: 047

REACTIONS (1)
  - Drug ineffective [Recovered/Resolved]
